FAERS Safety Report 18395337 (Version 2)
Quarter: 2020Q4

REPORT INFORMATION
  Report Type: Report from Study
  Country: US (occurrence: US)
  Receive Date: 20201017
  Receipt Date: 20201029
  Transmission Date: 20210114
  Serious: No
  Sender: FDA-Public Use
  Company Number: NVSC2020US278121

PATIENT
  Sex: Male

DRUGS (1)
  1. ENTRESTO [Suspect]
     Active Substance: SACUBITRIL\VALSARTAN
     Indication: PRODUCT USED FOR UNKNOWN INDICATION
     Dosage: 50 MG, (24.26 MG) BID
     Route: 048
     Dates: start: 2017

REACTIONS (4)
  - Fluid overload [Unknown]
  - Arteriovenous fistula site complication [Unknown]
  - Ejection fraction decreased [Unknown]
  - Arteriovenous fistula site haemorrhage [Unknown]
